FAERS Safety Report 4513354-2 (Version None)
Quarter: 2004Q4

REPORT INFORMATION
  Report Type: 
  Country: None (occurrence: None)
  Receive Date: 20041130
  Receipt Date: 20040819
  Transmission Date: 20050328
  Serious: No
  Sender: FDA-Public Use
  Company Number: US-BRISTOL-MYERS SQUIBB COMPANY-12678454

PATIENT
  Age: 46 Year
  Sex: Female
  Weight: 80 kg

DRUGS (5)
  1. ERBITUX [Suspect]
     Indication: RECTAL CANCER
     Route: 042
     Dates: start: 20040801, end: 20040801
  2. BENADRYL [Concomitant]
     Indication: PREMEDICATION
     Route: 042
     Dates: start: 20040801, end: 20040801
  3. ESTRACE [Concomitant]
  4. CELEXA [Concomitant]
  5. MORPHINE [Concomitant]
     Route: 008

REACTIONS (1)
  - RASH [None]
